FAERS Safety Report 9838360 (Version 1)
Quarter: 2013Q4

REPORT INFORMATION
  Report Type: Spontaneous
  Country: US (occurrence: None)
  Receive Date: 20131206
  Receipt Date: 20131206
  Transmission Date: 20140711
  Serious: Yes (Other)
  Sender: FDA-Public Use
  Company Number: RB-45423-2012

PATIENT
  Sex: Female

DRUGS (2)
  1. DELSYM [Suspect]
     Indication: COUGH
     Route: 048
  2. SYMBICORT [Concomitant]

REACTIONS (1)
  - Drug ineffective [None]
